FAERS Safety Report 7044866-8 (Version None)
Quarter: 2010Q4

REPORT INFORMATION
  Report Type: 
  Country: None (occurrence: None)
  Receive Date: 20101014
  Receipt Date: 20101005
  Transmission Date: 20110411
  Serious: Yes (Other)
  Sender: FDA-Public Use
  Company Number: PHHO2010CH14134

PATIENT
  Sex: Female
  Weight: 62 kg

DRUGS (3)
  1. FTY 720 FTY+CAP [Suspect]
     Indication: MULTIPLE SCLEROSIS
     Dosage: CODE NOT BROKEN
     Route: 048
     Dates: start: 20040914, end: 20100420
  2. FTY [Suspect]
     Indication: MULTIPLE SCLEROSIS
     Dosage: 0.5MG
     Route: 048
     Dates: start: 20100421, end: 20100916
  3. HYALURONATE SODIUM [Concomitant]

REACTIONS (4)
  - MALIGNANT TUMOUR EXCISION [None]
  - RASH PAPULAR [None]
  - SKIN LESION [None]
  - SQUAMOUS CELL CARCINOMA [None]
